FAERS Safety Report 4850510-8 (Version None)
Quarter: 2005Q4

REPORT INFORMATION
  Report Type: 
  Country: None (occurrence: None)
  Receive Date: 20051208
  Receipt Date: 20051128
  Transmission Date: 20060501
  Serious: Yes (Hospitalization)
  Sender: FDA-Public Use
  Company Number: 2005162663

PATIENT
  Sex: Female

DRUGS (3)
  1. EPIRUBICIN [Suspect]
     Indication: ILL-DEFINED DISORDER
     Dosage: (EVERY 21 DAYS)
     Dates: start: 20050615, end: 20050701
  2. FLUOROURACIL [Suspect]
     Indication: ILL-DEFINED DISORDER
     Dosage: (EVERY 21 DAYS)
     Dates: start: 20050615, end: 20050701
  3. CYCLOPHOSPHAMIDE [Suspect]
     Indication: ILL-DEFINED DISORDER
     Dosage: (EVERY 21 DAYS)
     Dates: start: 20050615, end: 20050701

REACTIONS (1)
  - GUILLAIN-BARRE SYNDROME [None]
